FAERS Safety Report 19061629 (Version 6)
Quarter: 2021Q3

REPORT INFORMATION
  Report Type: Report from Study
  Country: AE (occurrence: AE)
  Receive Date: 20210325
  Receipt Date: 20210719
  Transmission Date: 20211014
  Serious: Yes (Hospitalization, Other)
  Sender: FDA-Public Use
  Company Number: AE-INCYTE CORPORATION-2021IN002594

PATIENT

DRUGS (9)
  1. JAKAVI [Suspect]
     Active Substance: RUXOLITINIB
     Dosage: 20 MG, BID
     Route: 048
     Dates: start: 20210407
  2. HYDREA [Concomitant]
     Active Substance: HYDROXYUREA
     Dosage: 500 MG
     Route: 065
  3. JAKAVI [Suspect]
     Active Substance: RUXOLITINIB
     Indication: MYELOFIBROSIS
     Dosage: 25 MG, BID
     Route: 048
     Dates: start: 20190318
  4. HYDREA [Concomitant]
     Active Substance: HYDROXYUREA
     Dosage: 1500 MG (STARTED IN 2021) (PHYSICIAN RECOMMENDED TO STOP HYDREA ON 14 MAR 2019)
     Route: 065
     Dates: end: 20210314
  5. JAKAVI [Suspect]
     Active Substance: RUXOLITINIB
     Dosage: 50 MG, QD
     Route: 048
     Dates: start: 20210324
  6. HYDREA [Concomitant]
     Active Substance: HYDROXYUREA
     Indication: PRODUCT USED FOR UNKNOWN INDICATION
     Dosage: 2000 MG
     Route: 065
     Dates: start: 2017
  7. HYDREA [Concomitant]
     Active Substance: HYDROXYUREA
     Dosage: UNK
     Route: 065
     Dates: start: 20210314
  8. ALLOPURINOL. [Concomitant]
     Active Substance: ALLOPURINOL
     Indication: PRODUCT USED FOR UNKNOWN INDICATION
     Dosage: 100 MG
     Route: 065
  9. JAKAVI [Suspect]
     Active Substance: RUXOLITINIB
     Dosage: UNK
     Route: 048
     Dates: start: 20210323

REACTIONS (12)
  - Subdural haemorrhage [Recovered/Resolved]
  - Dizziness [Recovering/Resolving]
  - Product dose omission issue [Unknown]
  - Inappropriate schedule of product administration [Unknown]
  - Chest pain [Recovered/Resolved]
  - Splenomegaly [Not Recovered/Not Resolved]
  - Haematoma [Not Recovered/Not Resolved]
  - Incorrect dose administered [Unknown]
  - Platelet count decreased [Not Recovered/Not Resolved]
  - Red blood cell count decreased [Not Recovered/Not Resolved]
  - White blood cell count increased [Not Recovered/Not Resolved]
  - Haemoglobin decreased [Not Recovered/Not Resolved]

NARRATIVE: CASE EVENT DATE: 20210313
